FAERS Safety Report 9020727 (Version 1)
Quarter: 2013Q1

REPORT INFORMATION
  Report Type: Spontaneous
  Country: None (occurrence: US)
  Receive Date: 20130119
  Receipt Date: 20130119
  Transmission Date: 20140127
  Serious: No
  Sender: FDA-Public Use
  Company Number: US-ALLERGAN-1205548US

PATIENT
  Sex: Female

DRUGS (4)
  1. BOTOX COSMETIC [Suspect]
     Indication: EYELID PTOSIS
     Dosage: 5 UNITS, SINGLE
     Route: 030
     Dates: start: 20120402, end: 20120402
  2. BOTOX COSMETIC [Suspect]
     Dosage: 15 UNITS
     Route: 030
     Dates: start: 20120402, end: 20120402
  3. BOTOX COSMETIC [Suspect]
     Dosage: 10 UNITS, UNK
     Route: 030
     Dates: start: 20120402, end: 20120402
  4. BOTOX COSMETIC [Suspect]
     Dosage: UNK
     Route: 030
     Dates: start: 20120330, end: 20120330

REACTIONS (3)
  - Cutis laxa [Not Recovered/Not Resolved]
  - Eyelid ptosis [Not Recovered/Not Resolved]
  - Drug ineffective [Unknown]
